FAERS Safety Report 7686361-9 (Version None)
Quarter: 2011Q3

REPORT INFORMATION
  Report Type: 
  Country: None (occurrence: None)
  Receive Date: 20110816
  Receipt Date: 20110810
  Transmission Date: 20111222
  Serious: Yes (Hospitalization)
  Sender: FDA-Public Use
  Company Number: JP-GLAXOSMITHKLINE-B0737789A

PATIENT
  Sex: Male

DRUGS (5)
  1. SUMATRIPTAN SUCCINATE [Suspect]
     Indication: HEADACHE
     Route: 048
     Dates: start: 20110511, end: 20110525
  2. CHINESE MEDICINE [Concomitant]
     Route: 048
  3. PAXIL [Concomitant]
     Route: 048
  4. ISOMENYL [Concomitant]
     Route: 048
  5. MICARDIS [Concomitant]
     Route: 048

REACTIONS (2)
  - DRUG ERUPTION [None]
  - STEVENS-JOHNSON SYNDROME [None]
